FAERS Safety Report 7901618-1 (Version None)
Quarter: 2011Q4

REPORT INFORMATION
  Report Type: 
  Country: None (occurrence: None)
  Receive Date: 20111108
  Receipt Date: 20111024
  Transmission Date: 20120403
  Serious: Yes (Death)
  Sender: FDA-Public Use
  Company Number: CO-ROCHE-1010109

PATIENT
  Sex: Female

DRUGS (5)
  1. METHYLPREDNISOLONE [Concomitant]
     Indication: SYSTEMIC LUPUS ERYTHEMATOSUS
     Route: 042
  2. DIPHENHYDRAMINE HCL [Concomitant]
  3. PREDNISOLONE [Concomitant]
     Indication: SYSTEMIC LUPUS ERYTHEMATOSUS
  4. ACETAMINOPHEN [Concomitant]
  5. MABTHERA [Suspect]
     Indication: SYSTEMIC LUPUS ERYTHEMATOSUS

REACTIONS (1)
  - PULMONARY ALVEOLAR HAEMORRHAGE [None]
